FAERS Safety Report 9412221 (Version 1)
Quarter: 2013Q3

REPORT INFORMATION
  Report Type: Spontaneous
  Country: US (occurrence: None)
  Receive Date: 20130719
  Receipt Date: 20130719
  Transmission Date: 20140515
  Serious: Yes (Hospitalization)
  Sender: FDA-Public Use
  Company Number: None

PATIENT
  Age: 69 Year
  Sex: Female
  Weight: 66.68 kg

DRUGS (2)
  1. EFFIENT [Suspect]
     Indication: ANGIOPLASTY
     Route: 048
  2. ASPIRIN [Concomitant]

REACTIONS (6)
  - Rash [None]
  - Rash erythematous [None]
  - Contusion [None]
  - Haematemesis [None]
  - Rectal haemorrhage [None]
  - Gastritis erosive [None]
